FAERS Safety Report 8108491-X (Version None)
Quarter: 2012Q1

REPORT INFORMATION
  Report Type: 
  Country: None (occurrence: None)
  Receive Date: 20120202
  Receipt Date: 20120126
  Transmission Date: 20120608
  Serious: Yes (Hospitalization, Other)
  Sender: FDA-Public Use
  Company Number: JP-PFIZER INC-2011310959

PATIENT
  Age: 40 Year
  Sex: Male
  Weight: 61.2 kg

DRUGS (5)
  1. PENTASA [Suspect]
     Indication: COLITIS ULCERATIVE
     Dosage: 1000 MG, 3X/DAY
     Route: 048
     Dates: end: 20090620
  2. SULFASALAZINE [Suspect]
     Dosage: UNK
     Dates: start: 20090828
  3. PREDNISOLONE [Suspect]
     Indication: COLITIS ULCERATIVE
     Dosage: 10 MG, 2X/DAY
  4. SULFASALAZINE [Suspect]
     Indication: COLITIS ULCERATIVE
     Dosage: 2000 MG, 3X/DAY
     Dates: start: 20090620, end: 20090720
  5. SULFASALAZINE [Suspect]
     Dosage: 500MG
     Dates: start: 20090601

REACTIONS (2)
  - LIVER DISORDER [None]
  - ERYTHEMA MULTIFORME [None]
